FAERS Safety Report 16023150 (Version 1)
Quarter: 2019Q1

REPORT INFORMATION
  Report Type: Spontaneous
  Country: GB (occurrence: GB)
  Receive Date: 20190301
  Receipt Date: 20190301
  Transmission Date: 20190418
  Serious: Yes (Hospitalization, Disabling)
  Sender: FDA-Public Use
  Company Number: GB-ABBVIE-19S-167-2686376-00

PATIENT
  Sex: Male

DRUGS (1)
  1. TESTOGEL [Suspect]
     Active Substance: TESTOSTERONE
     Indication: PRODUCT USED FOR UNKNOWN INDICATION
     Dosage: 16.2 MG/G, 8 PUMPS A DAY
     Route: 065

REACTIONS (7)
  - Wheelchair user [Unknown]
  - Dizziness [Unknown]
  - Incorrect dose administered [Unknown]
  - Malaise [Unknown]
  - Deafness unilateral [Unknown]
  - Hyperhidrosis [Unknown]
  - Impaired driving ability [Unknown]
